FAERS Safety Report 7509616-7 (Version None)
Quarter: 2011Q2

REPORT INFORMATION
  Report Type: 
  Country: None (occurrence: None)
  Receive Date: 20110527
  Receipt Date: 20110525
  Transmission Date: 20111010
  Serious: Yes (Death, Other)
  Sender: FDA-Public Use
  Company Number: CN-ABBOTT-11P-035-0719165-00

PATIENT
  Sex: Male

DRUGS (9)
  1. CYCLOSPORINE [Suspect]
     Indication: PROPHYLAXIS AGAINST GRAFT VERSUS HOST DISEASE
     Dosage: 125 MG DAILY INTRAVENOUS DRIP
     Route: 042
     Dates: start: 20090317, end: 20090413
  2. CYCLOSPORINE [Suspect]
     Route: 048
     Dates: start: 20090413
  3. ANTIBIOTICS [Concomitant]
     Indication: PANCYTOPENIA
  4. BLOOD TRANSFUSIONS [Concomitant]
     Indication: PRODUCT USED FOR UNKNOWN INDICATION
  5. RED CELL [Concomitant]
     Indication: PRODUCT USED FOR UNKNOWN INDICATION
     Dosage: TRANSFUSIONS CONSTANTLY
  6. PLATELETS [Concomitant]
     Indication: PRODUCT USED FOR UNKNOWN INDICATION
     Dosage: TRANSFUSIONS CONSTANTLY
  7. CYCLOSPORINE [Suspect]
     Indication: APLASTIC ANAEMIA
     Route: 048
     Dates: start: 20081229, end: 20090312
  8. PREDNISONE [Suspect]
     Indication: PRODUCT USED FOR UNKNOWN INDICATION
     Dosage: 10-30 MG DAILY
     Dates: end: 20090129
  9. ACYCLOVIR [Concomitant]
     Indication: VARICELLA

REACTIONS (11)
  - IMMUNOSUPPRESSION [None]
  - VARICELLA [None]
  - HAEMORRHAGE INTRACRANIAL [None]
  - TREATMENT FAILURE [None]
  - THROMBOCYTOPENIA [None]
  - HEPATOSPLENOMEGALY [None]
  - DIARRHOEA [None]
  - GRAFT VERSUS HOST DISEASE [None]
  - KAPOSI'S SARCOMA [None]
  - PANCYTOPENIA [None]
  - LYMPHADENOPATHY [None]
